FAERS Safety Report 10516606 (Version 1)
Quarter: 2014Q4

REPORT INFORMATION
  Report Type: Spontaneous
  Country: US (occurrence: US)
  Receive Date: 20141014
  Receipt Date: 20141014
  Transmission Date: 20150528
  Serious: No
  Sender: FDA-Public Use
  Company Number: US-TARO-2014P1002833

PATIENT
  Age: 2 Year
  Sex: Male
  Weight: 10.89 kg

DRUGS (3)
  1. LORATADINE SYRUP (LORATADINE ORAL SOLUTION USP) 5MG/5ML [Suspect]
     Active Substance: LORATADINE
     Route: 048
     Dates: start: 20140330
  2. AMOXICILLIN. [Concomitant]
     Active Substance: AMOXICILLIN
     Dates: start: 20140328
  3. LORATADINE SYRUP (LORATADINE ORAL SOLUTION USP) 5MG/5ML [Suspect]
     Active Substance: LORATADINE
     Indication: HYPERSENSITIVITY
     Route: 048
     Dates: start: 20140328, end: 20140330

REACTIONS (3)
  - Rhinorrhoea [Not Recovered/Not Resolved]
  - Irritability [Not Recovered/Not Resolved]
  - Inappropriate schedule of drug administration [Unknown]

NARRATIVE: CASE EVENT DATE: 201403
